FAERS Safety Report 22248163 (Version 1)
Quarter: 2023Q2

REPORT INFORMATION
  Report Type: Spontaneous
  Country: IT (occurrence: IT)
  Receive Date: 20230425
  Receipt Date: 20230425
  Transmission Date: 20230722
  Serious: Yes (Other)
  Sender: FDA-Public Use
  Company Number: None

PATIENT
  Age: 63 Year
  Sex: Male
  Weight: 73 kg

DRUGS (3)
  1. OXALIPLATIN [Suspect]
     Active Substance: OXALIPLATIN
     Indication: Pancreatic carcinoma
     Dosage: 150 MG, 14D, (150 MG OGNI 14 GIORNI)
     Route: 042
     Dates: start: 20221013
  2. FLUOROURACIL [Suspect]
     Active Substance: FLUOROURACIL
     Indication: Pancreatic carcinoma
     Dosage: 4450 MG, 14D, (4450 MG OGNI 14 GIORNI)
     Route: 065
     Dates: start: 20221013
  3. IRINOTECAN [Suspect]
     Active Substance: IRINOTECAN
     Indication: Pancreatic carcinoma
     Dosage: 250 MG, 14D, (250 MG OGNI 14 GIORNI)
     Route: 042
     Dates: start: 20221013

REACTIONS (3)
  - Neurotoxicity [Not Recovered/Not Resolved]
  - Dysgeusia [Unknown]
  - Haematuria [Recovered/Resolved]

NARRATIVE: CASE EVENT DATE: 20221101
